FAERS Safety Report 4283446-4 (Version None)
Quarter: 2004Q1

REPORT INFORMATION
  Report Type: 
  Country: None (occurrence: None)
  Receive Date: 20040121
  Receipt Date: 20030102
  Transmission Date: 20041129
  Serious: Yes (Hospitalization)
  Sender: FDA-Public Use
  Company Number: A03200300004

PATIENT
  Age: 77 Year
  Sex: Female

DRUGS (2)
  1. PLAVIX [Suspect]
     Dosage: 75 MG QD - ORAL
     Route: 048
     Dates: start: 20020823, end: 20020901
  2. PLAVIX [Suspect]
     Dosage: 75 MG QD -ORAL
     Route: 048
     Dates: start: 20021104

REACTIONS (2)
  - GASTROINTESTINAL ULCER [None]
  - HAEMORRHAGE [None]
